FAERS Safety Report 7202633-6 (Version None)
Quarter: 2010Q4

REPORT INFORMATION
  Report Type: 
  Country: None (occurrence: None)
  Receive Date: 20101229
  Receipt Date: 20101111
  Transmission Date: 20110411
  Serious: No
  Sender: FDA-Public Use
  Company Number: US-PFIZER INC-2010115982

PATIENT

DRUGS (1)
  1. LIPITOR [Suspect]

REACTIONS (3)
  - INTERVERTEBRAL DISC PROTRUSION [None]
  - MUSCULAR WEAKNESS [None]
  - PAIN IN EXTREMITY [None]
